FAERS Safety Report 8495367-1 (Version None)
Quarter: 2012Q2

REPORT INFORMATION
  Report Type: 
  Country: None (occurrence: None)
  Receive Date: 20120403
  Receipt Date: 20110630
  Transmission Date: 20120825
  Serious: Yes (Other)
  Sender: FDA-Public Use
  Company Number: 3-0611-66

PATIENT
  Sex: Female

DRUGS (2)
  1. DERMOTIC [Suspect]
     Indication: ECZEMA
     Dosage: TOPICAL
     Route: 061
  2. CLINIQUE COSMETICS [Concomitant]

REACTIONS (1)
  - RHINORRHOEA [None]
